FAERS Safety Report 7148637-3 (Version None)
Quarter: 2010Q4

REPORT INFORMATION
  Report Type: 
  Country: None (occurrence: None)
  Receive Date: 20101123
  Receipt Date: 20101116
  Transmission Date: 20110411
  Serious: Yes (Other)
  Sender: FDA-Public Use
  Company Number: 2010MA004596

PATIENT
  Age: 8 Year
  Sex: Female

DRUGS (4)
  1. TRIAMCINOLONE ACETONIDE [Suspect]
     Indication: JUVENILE ARTHRITIS
     Dosage: 10MG;X1;IA
     Route: 014
  2. CON MEDS [Concomitant]
  3. NAPROXEN [Concomitant]
  4. METHOTREXATE [Concomitant]

REACTIONS (1)
  - LIPOATROPHY [None]
